FAERS Safety Report 22334561 (Version 1)
Quarter: 2023Q2

REPORT INFORMATION
  Report Type: Spontaneous
  Country: US (occurrence: None)
  Receive Date: 20230517
  Receipt Date: 20230517
  Transmission Date: 20230721
  Serious: No
  Sender: FDA-Public Use
  Company Number: US-ROCHE-3158595

PATIENT
  Sex: Female

DRUGS (5)
  1. ACTEMRA [Suspect]
     Active Substance: TOCILIZUMAB
     Indication: Psoriasis
     Route: 058
     Dates: start: 20220517
  2. ACTEMRA [Suspect]
     Active Substance: TOCILIZUMAB
  3. NIFEDIPINE [Concomitant]
     Active Substance: NIFEDIPINE
  4. ESOMEPRAZOLE [Concomitant]
     Active Substance: ESOMEPRAZOLE
  5. OFEV [Concomitant]
     Active Substance: NINTEDANIB

REACTIONS (1)
  - Illness [Unknown]
